FAERS Safety Report 15059767 (Version 1)
Quarter: 2018Q2

REPORT INFORMATION
  Report Type: Spontaneous
  Country: US (occurrence: US)
  Receive Date: 20180625
  Receipt Date: 20180625
  Transmission Date: 20180711
  Serious: Yes (Other)
  Sender: FDA-Public Use
  Company Number: US-SA-2017SA254476

PATIENT
  Age: 54 Year
  Sex: Female
  Weight: 102.05 kg

DRUGS (14)
  1. ASA [Concomitant]
     Active Substance: ASPIRIN
  2. DECADRON [DEXAMETHASONE] [Concomitant]
  3. CYTOXAN [Concomitant]
     Active Substance: CYCLOPHOSPHAMIDE
  4. TAXOTERE [Suspect]
     Active Substance: DOCETAXEL
     Dosage: 146 MG, Q3W
     Route: 042
     Dates: start: 20080703, end: 20080703
  5. ENALAPRIL [Concomitant]
     Active Substance: ENALAPRIL
  6. ZOFRAN [ONDANSETRON] [Concomitant]
  7. VICOPROFEN [Concomitant]
     Active Substance: HYDROCODONE BITARTRATE\IBUPROFEN
  8. NEOSAR [Concomitant]
     Active Substance: CYCLOPHOSPHAMIDE
  9. GLUCOPHAGE [Concomitant]
     Active Substance: METFORMIN HYDROCHLORIDE
  10. TAXOTERE [Suspect]
     Active Substance: DOCETAXEL
     Indication: BREAST CANCER
     Dosage: 146 MG, Q3W
     Route: 042
     Dates: start: 20080501, end: 20080501
  11. PRAVASTATIN. [Concomitant]
     Active Substance: PRAVASTATIN
  12. LATANOPROST. [Concomitant]
     Active Substance: LATANOPROST
  13. LORAZEPAM. [Concomitant]
     Active Substance: LORAZEPAM
  14. TRANDATE [Concomitant]
     Active Substance: LABETALOL HYDROCHLORIDE

REACTIONS (2)
  - Alopecia [Recovering/Resolving]
  - Psychological trauma [Unknown]

NARRATIVE: CASE EVENT DATE: 20090103
